FAERS Safety Report 16130320 (Version 1)
Quarter: 2019Q1

REPORT INFORMATION
  Report Type: Spontaneous
  Country: US (occurrence: US)
  Receive Date: 20190328
  Receipt Date: 20190328
  Transmission Date: 20190418
  Serious: No
  Sender: FDA-Public Use
  Company Number: US-INDIVIOR LIMITED-INDV-116924-2019

PATIENT
  Sex: Female

DRUGS (2)
  1. SUBLOCADE [Suspect]
     Active Substance: BUPRENORPHINE
     Indication: PRODUCT USED FOR UNKNOWN INDICATION
     Dosage: 300 MG, QMO
     Route: 065
     Dates: start: 20190103
  2. SUBUTEX [Suspect]
     Active Substance: BUPRENORPHINE HYDROCHLORIDE
     Indication: PRODUCT USED FOR UNKNOWN INDICATION
     Dosage: 8 MG, TID
     Route: 060

REACTIONS (6)
  - Vomiting [Unknown]
  - Inappropriate schedule of product administration [Recovered/Resolved]
  - Maternal exposure during pregnancy [Not Recovered/Not Resolved]
  - Drug withdrawal syndrome [Not Recovered/Not Resolved]
  - Nausea [Unknown]
  - Drug dependence [Not Recovered/Not Resolved]

NARRATIVE: CASE EVENT DATE: 2018
